FAERS Safety Report 16665107 (Version 1)
Quarter: 2019Q3

REPORT INFORMATION
  Report Type: Spontaneous
  Country: DE (occurrence: DE)
  Receive Date: 20190803
  Receipt Date: 20190803
  Transmission Date: 20191004
  Serious: Yes (Hospitalization)
  Sender: FDA-Public Use
  Company Number: DE-ACCORD-150097

PATIENT
  Age: 78 Year
  Sex: Female

DRUGS (3)
  1. CARBOPLATIN ACCORD [Suspect]
     Active Substance: CARBOPLATIN
     Indication: OVARIAN CANCER
     Dosage: STRENGTH: 600 MG VIAL, DILUTED IN 5% GLUCOSE
     Route: 042
     Dates: start: 20190726, end: 20190726
  2. ONDANSETRON [Concomitant]
     Active Substance: ONDANSETRON
     Dosage: DILUTED IN 100 ML 0.9% NAC
     Route: 042
     Dates: start: 20190726, end: 20190726
  3. DEXAMETHASONE. [Concomitant]
     Active Substance: DEXAMETHASONE
     Dosage: DILUTED IN 1000 ML 0.9% NACL
     Route: 042
     Dates: start: 20190726, end: 20190726

REACTIONS (2)
  - Loss of consciousness [Unknown]
  - Circulatory collapse [Unknown]

NARRATIVE: CASE EVENT DATE: 20190726
